FAERS Safety Report 9115857 (Version 1)
Quarter: 2013Q1

REPORT INFORMATION
  Report Type: Spontaneous
  Country: US (occurrence: US)
  Receive Date: 20130225
  Receipt Date: 20130225
  Transmission Date: 20140127
  Serious: Yes (Other)
  Sender: FDA-Public Use
  Company Number: US-ELI_LILLY_AND_COMPANY-US201302006114

PATIENT
  Sex: Female

DRUGS (2)
  1. EFFIENT [Suspect]
     Dosage: 60 MG, SINGLE
     Dates: start: 20130131, end: 20130131
  2. EFFIENT [Suspect]
     Dosage: 10 MG, QD
     Dates: start: 20130201, end: 20130207

REACTIONS (1)
  - Coronary artery restenosis [Recovering/Resolving]
